FAERS Safety Report 17574999 (Version 1)
Quarter: 2020Q1

REPORT INFORMATION
  Report Type: Spontaneous
  Country: US (occurrence: US)
  Receive Date: 20200324
  Receipt Date: 20200324
  Transmission Date: 20200409
  Serious: No
  Sender: FDA-Public Use
  Company Number: US-ASTRAZENECA-2020SE38801

PATIENT
  Sex: Male
  Weight: 6.2 kg

DRUGS (3)
  1. SYNAGIS [Suspect]
     Active Substance: PALIVIZUMAB
     Indication: BRONCHOPULMONARY DYSPLASIA
     Route: 030
  2. MULTIVITAMIN [Concomitant]
     Active Substance: VITAMINS
  3. W/IRON [Concomitant]

REACTIONS (4)
  - Irritability [Unknown]
  - Sneezing [Unknown]
  - Nasopharyngitis [Unknown]
  - Injection site reaction [Unknown]
